FAERS Safety Report 10176284 (Version 1)
Quarter: 2014Q2

REPORT INFORMATION
  Report Type: Spontaneous
  Country: US (occurrence: US)
  Receive Date: 20140516
  Receipt Date: 20140516
  Transmission Date: 20141212
  Serious: No
  Sender: FDA-Public Use
  Company Number: US-PFIZER INC-2014132549

PATIENT
  Sex: Female

DRUGS (2)
  1. TIKOSYN [Suspect]
     Dosage: 250 UG, 2X/DAY
  2. LISINOPRIL [Suspect]
     Indication: BLOOD PRESSURE ABNORMAL
     Dosage: UNK

REACTIONS (2)
  - Dizziness [Recovered/Resolved]
  - Night sweats [Unknown]
